FAERS Safety Report 7811279-8 (Version None)
Quarter: 2011Q4

REPORT INFORMATION
  Report Type: 
  Country: None (occurrence: None)
  Receive Date: 20111011
  Receipt Date: 20110928
  Transmission Date: 20120403
  Serious: Yes (Other)
  Sender: FDA-Public Use
  Company Number: 1000024312

PATIENT
  Age: 71 Year
  Sex: Female
  Weight: 72.7 kg

DRUGS (13)
  1. LEVOTHROID [Concomitant]
  2. DEPLIN (CALCIUM LEVOMEFOLATE)(CALCIUM LEVOMEFOLATE) [Concomitant]
  3. TRAZODONE HCL [Suspect]
     Indication: DEPRESSION
     Dosage: 300 MG (300 MG, 1 IN 1 D)
  4. PRISTIQ [Suspect]
     Indication: DEPRESSION
     Dosage: (50 MG, EVERY OTHER DAY), ORAL
     Route: 048
     Dates: start: 20110901
  5. TOPROL (METOPROLOL SUCCINATE) (TABLETS) (METOPROLOL SUCCINATE0 [Concomitant]
  6. BENICAR [Concomitant]
  7. LEXAPRO [Suspect]
     Indication: DEPRESSION
     Dosage: 10 MG (10 MG, 1 IN 1 D), ORAL
     Route: 048
  8. SPECTRAVITE (MULTIVITAMINS) (TABLETS) (MULTIVITAMINS) [Concomitant]
  9. VITAMIN D3 (COLECALCIFEROL) (COLECALCIFEROL) [Concomitant]
  10. CYMBALTA (DULOXETINE HYDROCHLORIDE) (CAPSULES) (DULOXETINE HYDROCHLORI [Concomitant]
  11. ATIVAN (LORAZEPAM) (TABLETS) (LORAZEPAM) [Concomitant]
  12. ZYPREXA [Suspect]
     Indication: DEPRESSION
     Dosage: 10 MG (10 MG, 1 IN 1 D), ORAL
     Route: 048
  13. OMEGA 3 FATTY ACIDS (OMEGA 3 FATTY ACIDS) (OMEGA 3 FATTY ACIDS) [Concomitant]

REACTIONS (2)
  - MULTIPLE SCLEROSIS [None]
  - SEROTONIN SYNDROME [None]
